FAERS Safety Report 24703045 (Version 2)
Quarter: 2024Q4

REPORT INFORMATION
  Report Type: Spontaneous
  Country: BR (occurrence: BR)
  Receive Date: 20241205
  Receipt Date: 20241220
  Transmission Date: 20250114
  Serious: Yes (Other)
  Sender: PFIZER
  Company Number: BR-PFIZER INC-202400315580

PATIENT
  Age: 47 Year
  Sex: Male
  Weight: 99 kg

DRUGS (5)
  1. CAVERJECT [Interacting]
     Active Substance: ALPROSTADIL
     Indication: Erectile dysfunction
     Dosage: 20 UG, AS NEEDED
     Route: 017
     Dates: start: 2024
  2. VIAGRA [Interacting]
     Active Substance: SILDENAFIL CITRATE
     Indication: Erectile dysfunction
  3. METFORMIN [Concomitant]
     Active Substance: METFORMIN HYDROCHLORIDE
     Indication: Diabetes mellitus
  4. RAMIPRIL [Concomitant]
     Active Substance: RAMIPRIL
     Indication: Hypertension
  5. CIPROFIBRATE [Concomitant]
     Active Substance: CIPROFIBRATE

REACTIONS (7)
  - Suspected counterfeit product [Unknown]
  - Drug interaction [Unknown]
  - Testicular pain [Unknown]
  - Drug abuser [Unknown]
  - Testicular swelling [Recovered/Resolved]
  - Prescription drug used without a prescription [Recovered/Resolved]
  - Alcohol interaction [Unknown]
